FAERS Safety Report 12420924 (Version 1)
Quarter: 2016Q2

REPORT INFORMATION
  Report Type: Report from Study
  Country: NL (occurrence: NL)
  Receive Date: 20160531
  Receipt Date: 20160531
  Transmission Date: 20160815
  Serious: Yes (Hospitalization, Other)
  Sender: FDA-Public Use
  Company Number: NL-AMGEN-NLDSL2016057826

PATIENT
  Age: 61 Year
  Sex: Male

DRUGS (1)
  1. ARANESP [Suspect]
     Active Substance: DARBEPOETIN ALFA
     Indication: MYELODYSPLASTIC SYNDROME
     Dosage: 1 ML (500MCG/ML), Q3WK
     Route: 058

REACTIONS (3)
  - Off label use [Unknown]
  - Nephrolithiasis [Unknown]
  - Renal colic [Unknown]

NARRATIVE: CASE EVENT DATE: 20160502
